FAERS Safety Report 5825077-8 (Version None)
Quarter: 2008Q3

REPORT INFORMATION
  Report Type: 
  Country: None (occurrence: None)
  Receive Date: 20080724
  Receipt Date: 20080724
  Transmission Date: 20090109
  Serious: No
  Sender: FDA-Public Use
  Company Number: None

PATIENT
  Sex: Female

DRUGS (1)
  1. EXELON [Suspect]
     Indication: DEMENTIA ALZHEIMER'S TYPE
     Dosage: 1 PATCH QD TOPICAL TRANSDERMAL
     Route: 061
     Dates: start: 20080422, end: 20080718

REACTIONS (2)
  - APPLICATION SITE RASH [None]
  - RASH ERYTHEMATOUS [None]
